FAERS Safety Report 13323153 (Version 2)
Quarter: 2017Q3

REPORT INFORMATION
  Report Type: Report from Study
  Country: TW (occurrence: TW)
  Receive Date: 20170310
  Receipt Date: 20170906
  Transmission Date: 20171127
  Serious: Yes (Other)
  Sender: FDA-Public Use
  Company Number: TW-MYLANLABS-2017M1015082

PATIENT
  Age: 82 Year
  Sex: Male

DRUGS (1)
  1. TRIAMCINOLONE [Suspect]
     Active Substance: TRIAMCINOLONE
     Indication: POLYPOIDAL CHOROIDAL VASCULOPATHY
     Dosage: 1 MG/0.025 ML, RECEIVED 19 CYCLES
     Route: 047

REACTIONS (2)
  - Cataract [Unknown]
  - Intraocular pressure increased [Unknown]
